FAERS Safety Report 10034469 (Version 1)
Quarter: 2014Q1

REPORT INFORMATION
  Report Type: Spontaneous
  Country: US (occurrence: None)
  Receive Date: 20140324
  Receipt Date: 20140324
  Transmission Date: 20141002
  Serious: Yes (Other)
  Sender: FDA-Public Use
  Company Number: None

PATIENT
  Age: 58 Year
  Sex: Female
  Weight: 56.7 kg

DRUGS (1)
  1. DEXTROAMP-AMPHET ER [Suspect]
     Indication: NARCOLEPSY
     Dosage: 3 CAPSULES 2 AM AND 1 @NOON
     Route: 048
     Dates: start: 20130916, end: 20140321

REACTIONS (3)
  - Drug effect decreased [None]
  - Drug dispensing error [None]
  - Product quality issue [None]
